FAERS Safety Report 18376933 (Version 9)
Quarter: 2024Q1

REPORT INFORMATION
  Report Type: Spontaneous
  Country: US (occurrence: US)
  Receive Date: 20201013
  Receipt Date: 20240326
  Transmission Date: 20240410
  Serious: No
  Sender: FDA-Public Use
  Company Number: US-PFIZER INC-2020391458

PATIENT
  Age: 68 Year
  Sex: Male

DRUGS (1)
  1. BOSULIF [Suspect]
     Active Substance: BOSUTINIB MONOHYDRATE
     Dosage: 500 MG, DAILY (1 TABLET ORALLY EVERY DAY, SWALLOW WHOLE; DO NOT BREAK TABLET. TAKE W/ FOOD)
     Route: 048

REACTIONS (2)
  - Diarrhoea [Unknown]
  - Product dose omission in error [Unknown]
